FAERS Safety Report 8813728 (Version 1)
Quarter: 2012Q4

REPORT INFORMATION
  Report Type: 
  Country: ES (occurrence: ES)
  Receive Date: 20120928
  Receipt Date: 20120928
  Transmission Date: 20130627
  Serious: Yes (Other)
  Sender: FDA-Public Use
  Company Number: ES-RANBAXY-2012R1-60453

PATIENT
  Age: 26 Year
  Sex: Male

DRUGS (6)
  1. QUETIAPINE [Suspect]
     Indication: PRODUCT USED FOR UNKNOWN INDICATION
     Dosage: UNK
     Route: 048
  2. RISPERIDONE [Interacting]
     Indication: AGGRESSION
     Dosage: UNK
     Route: 065
  3. TOPIRAMATE [Interacting]
     Indication: AGGRESSION
     Dosage: UNK
     Route: 065
  4. RIVOTRIL [Interacting]
     Indication: AGGRESSION
     Dosage: UNK
     Route: 065
  5. FLURAZEPAM [Interacting]
     Indication: AGGRESSION
     Dosage: UNK
     Route: 065
  6. BIPERIDEN [Interacting]
     Indication: AGGRESSION
     Dosage: UNK
     Route: 065

REACTIONS (2)
  - Rhabdomyolysis [Recovering/Resolving]
  - Drug interaction [Unknown]
